FAERS Safety Report 16061005 (Version 1)
Quarter: 2019Q1

REPORT INFORMATION
  Report Type: Spontaneous
  Country: US (occurrence: US)
  Receive Date: 20190312
  Receipt Date: 20190312
  Transmission Date: 20190418
  Serious: No
  Sender: FDA-Public Use
  Company Number: US-ROCHE-2112772

PATIENT
  Age: 86 Year
  Sex: Male
  Weight: 77.18 kg

DRUGS (1)
  1. AVASTIN [Suspect]
     Active Substance: BEVACIZUMAB
     Indication: NEOVASCULAR AGE-RELATED MACULAR DEGENERATION
     Dosage: RECEIVED 1 OF 3 DOSES
     Route: 042
     Dates: start: 20180413

REACTIONS (4)
  - Vitreous floaters [Not Recovered/Not Resolved]
  - Intentional product use issue [Unknown]
  - Ill-defined disorder [Unknown]
  - Off label use [Unknown]

NARRATIVE: CASE EVENT DATE: 20180413
